FAERS Safety Report 10650154 (Version 3)
Quarter: 2015Q1

REPORT INFORMATION
  Report Type: Spontaneous
  Country: JP (occurrence: JP)
  Receive Date: 20141212
  Receipt Date: 20150224
  Transmission Date: 20150720
  Serious: Yes (Hospitalization, Other)
  Sender: FDA-Public Use
  Company Number: JP-GSKJP-JP2014JPN034767AA

PATIENT
  Age: 82 Year
  Sex: Male

DRUGS (15)
  1. SALOBEL [Concomitant]
     Active Substance: ALLOPURINOL
     Dosage: 100 MG, QD
  2. MUCOSTA [Concomitant]
     Active Substance: REBAMIPIDE
     Dosage: 100 MG, PRN
  3. REQUIP [Suspect]
     Active Substance: ROPINIROLE HYDROCHLORIDE
     Indication: PARKINSON^S DISEASE
     Dosage: 8 MG, QD
     Route: 048
  4. REQUIP [Suspect]
     Active Substance: ROPINIROLE HYDROCHLORIDE
     Dosage: 4 MG, QD
     Route: 048
     Dates: start: 20141217, end: 20141222
  5. URIEF [Concomitant]
     Active Substance: SILODOSIN
     Dosage: 4 MG, BID
  6. EC-DOPARL [Concomitant]
     Active Substance: BENSERAZIDE HYDROCHLORIDE\LEVODOPA
     Dosage: 1 DF, TID
  7. LOXONIN [Concomitant]
     Active Substance: LOXOPROFEN SODIUM
     Dosage: 60 MG, PRN
  8. REQUIP [Suspect]
     Active Substance: ROPINIROLE HYDROCHLORIDE
     Dosage: 2 MG, QD
     Route: 048
     Dates: start: 20141223, end: 20141227
  9. ADONA (AC-17) [Concomitant]
     Dosage: 30 MG, TID
  10. DEPAS [Concomitant]
     Active Substance: ETIZOLAM
     Dosage: 0.5 MG, QD
  11. FP-OD [Concomitant]
     Active Substance: SELEGILINE HYDROCHLORIDE
     Dosage: 2.5 MG, QD
  12. REQUIP [Suspect]
     Active Substance: ROPINIROLE HYDROCHLORIDE
     Dosage: 6 MG, QD
     Route: 048
     Dates: start: 20141212, end: 20141216
  13. STAYBLA OD [Concomitant]
     Dosage: 0.1 MG, BID
  14. MAGNESIUM OXIDE. [Concomitant]
     Active Substance: MAGNESIUM OXIDE
     Dosage: 1 G, BID
  15. LANDSEN [Concomitant]
     Active Substance: CLONAZEPAM
     Dosage: 0.5 MG, QD

REACTIONS (4)
  - Sudden onset of sleep [Unknown]
  - Subdural haematoma [Unknown]
  - Loss of consciousness [Unknown]
  - Somnolence [Unknown]

NARRATIVE: CASE EVENT DATE: 20141209
